FAERS Safety Report 5509058-X (Version None)
Quarter: 2007Q4

REPORT INFORMATION
  Report Type: 
  Country: None (occurrence: None)
  Receive Date: 20071031
  Receipt Date: 20070912
  Transmission Date: 20080405
  Serious: Yes (Other)
  Sender: FDA-Public Use
  Company Number: 200711265BWH

PATIENT
  Age: 62 Year
  Sex: Male

DRUGS (2)
  1. NEXAVAR [Suspect]
     Indication: METASTASES TO KIDNEY
     Dosage: 200 MG, QD, ORAL
     Route: 048
     Dates: start: 20070101
  2. NEXAVAR [Suspect]
     Indication: METASTATIC RENAL CELL CARCINOMA
     Dosage: 200 MG, QD, ORAL
     Route: 048
     Dates: start: 20070101

REACTIONS (2)
  - SKIN LESION [None]
  - SQUAMOUS CELL CARCINOMA [None]
